FAERS Safety Report 7583982-9 (Version None)
Quarter: 2011Q2

REPORT INFORMATION
  Report Type: 
  Country: None (occurrence: None)
  Receive Date: 20110628
  Receipt Date: 20110628
  Transmission Date: 20111010
  Serious: Yes (Life-Threatening, Hospitalization, Disabling, Other)
  Sender: FDA-Public Use
  Company Number: None

PATIENT
  Age: 54 Year
  Sex: Female
  Weight: 82.5547 kg

DRUGS (2)
  1. FOSINOPRIL SODIUM [Suspect]
  2. LISINOPRIL AND HYDROCHLOROTHIAZIDE [Suspect]
     Indication: HYPERTENSION
     Dosage: 2 A DAY DAILY
     Dates: start: 20110429

REACTIONS (6)
  - PAIN [None]
  - APPENDICECTOMY [None]
  - SWOLLEN TONGUE [None]
  - DYSPNOEA [None]
  - INTESTINAL OBSTRUCTION [None]
  - APHASIA [None]
